FAERS Safety Report 9261992 (Version 4)
Quarter: 2013Q2

REPORT INFORMATION
  Report Type: Report from Study
  Country: US (occurrence: US)
  Receive Date: 20130429
  Receipt Date: 20130605
  Transmission Date: 20140414
  Serious: Yes (Other)
  Sender: FDA-Public Use
  Company Number: US-AMGEN-USACT2013028332

PATIENT
  Age: 15 Year
  Sex: Male

DRUGS (12)
  1. CINACALCET HCL [Suspect]
     Indication: HYPERPARATHYROIDISM SECONDARY
     Dosage: UNK
     Route: 048
     Dates: start: 20111214, end: 20130130
  2. ARANESP [Concomitant]
     Indication: ANAEMIA
     Dosage: 40 MUG, QWK
     Route: 042
     Dates: start: 20121005
  3. NU-IRON [Concomitant]
     Dosage: 150 MG, QD
     Route: 048
     Dates: start: 20091105
  4. RENVELA [Concomitant]
     Dosage: 2400 MG, UNK
     Route: 048
     Dates: start: 20110218
  5. NORMODYNE [Concomitant]
     Dosage: 300 MG, BID
     Route: 048
     Dates: start: 20111007
  6. SODIUM BICARBONATE [Concomitant]
     Dosage: 650 MG, BID
     Route: 048
     Dates: start: 20111223
  7. TISSUE PLASMINOGEN ACTIVATOR, RECOMBINATIVE [Concomitant]
     Dosage: 4 MG, AS NECESSARY
     Route: 042
     Dates: start: 20121008
  8. VANCOMYCIN [Concomitant]
     Dosage: 500 MG, UNK
     Route: 042
     Dates: start: 20121003
  9. PROCARDIA [Concomitant]
     Dosage: 60 MG, QD
     Route: 048
     Dates: start: 20120410
  10. CALCITRIOL [Concomitant]
     Dosage: 0.25 MUG, QD
     Route: 048
     Dates: start: 20120323
  11. NEPHROVITE [Concomitant]
     Dosage: UNK UNK, QD
     Route: 048
     Dates: start: 20120321
  12. PHOSLO [Concomitant]
     Dosage: 667 MG, AS NECESSARY
     Route: 048
     Dates: start: 20120206

REACTIONS (1)
  - Overdose [Recovered/Resolved]
